FAERS Safety Report 18767180 (Version 1)
Quarter: 2021Q1

REPORT INFORMATION
  Report Type: Spontaneous
  Country: US (occurrence: US)
  Receive Date: 20210120
  Receipt Date: 20210120
  Transmission Date: 20210419
  Serious: Yes (Hospitalization, Other)
  Sender: FDA-Public Use
  Company Number: None

PATIENT
  Sex: Female

DRUGS (1)
  1. DEFERASIROX TAB FOR ORAL SUSP 500MG ACTAVIS [Suspect]
     Active Substance: DEFERASIROX
     Indication: SICKLE CELL DISEASE
     Dosage: ?          OTHER DOSE:2 TABLETS ;?
     Route: 048
     Dates: start: 202011

REACTIONS (3)
  - Pneumonia [None]
  - Sickle cell anaemia with crisis [None]
  - Therapy interrupted [None]
